FAERS Safety Report 18082599 (Version 1)
Quarter: 2020Q3

REPORT INFORMATION
  Report Type: Spontaneous
  Country: SK (occurrence: SK)
  Receive Date: 20200729
  Receipt Date: 20200729
  Transmission Date: 20201103
  Serious: Yes (Hospitalization)
  Sender: FDA-Public Use
  Company Number: SK-ROCHE-2646390

PATIENT
  Sex: Female

DRUGS (1)
  1. TECENTRIQ [Suspect]
     Active Substance: ATEZOLIZUMAB
     Indication: TRIPLE NEGATIVE BREAST CANCER
     Route: 041
     Dates: start: 202006

REACTIONS (4)
  - Tri-iodothyronine decreased [Unknown]
  - Thyroxine decreased [Unknown]
  - Blood thyroid stimulating hormone increased [Unknown]
  - Cortisol increased [Unknown]

NARRATIVE: CASE EVENT DATE: 202007
